FAERS Safety Report 22294007 (Version 1)
Quarter: 2023Q2

REPORT INFORMATION
  Report Type: Other
  Country: CA (occurrence: CA)
  Receive Date: 20230508
  Receipt Date: 20230508
  Transmission Date: 20230722
  Serious: Yes (Other)
  Sender: FDA-Public Use
  Company Number: CA-PFIZER INC-202300179867

PATIENT
  Age: 76 Year
  Sex: Male

DRUGS (5)
  1. RITUXIMAB [Suspect]
     Active Substance: RITUXIMAB
     Indication: Epstein-Barr virus associated lymphoma
     Dosage: UNK
     Route: 065
  2. VINCRISTINE SULFATE [Suspect]
     Active Substance: VINCRISTINE SULFATE
     Indication: Epstein-Barr virus associated lymphoma
     Dosage: UNK
     Route: 065
  3. DOXORUBICIN HYDROCHLORIDE [Suspect]
     Active Substance: DOXORUBICIN HYDROCHLORIDE
     Indication: Epstein-Barr virus associated lymphoma
     Dosage: UNK
     Route: 065
  4. CYCLOPHOSPHAMIDE [Suspect]
     Active Substance: CYCLOPHOSPHAMIDE
     Indication: Epstein-Barr virus associated lymphoma
     Dosage: UNK
     Route: 065
  5. PREDNISONE [Suspect]
     Active Substance: PREDNISONE
     Indication: Epstein-Barr virus associated lymphoma
     Dosage: UNK
     Route: 065

REACTIONS (4)
  - Condition aggravated [Unknown]
  - Epstein-Barr virus associated lymphoma [Unknown]
  - Drug ineffective [Unknown]
  - Off label use [Unknown]
